FAERS Safety Report 4388481-3 (Version None)
Quarter: 2004Q2

REPORT INFORMATION
  Report Type: 
  Country: None (occurrence: None)
  Receive Date: 20040624
  Receipt Date: 20040617
  Transmission Date: 20050107
  Serious: Yes (Other)
  Sender: FDA-Public Use
  Company Number: 2004219596TH

PATIENT
  Age: 81 Year
  Sex: Female

DRUGS (1)
  1. CYTOTEC [Suspect]
     Indication: DRUG USE FOR UNKNOWN INDICATION
     Dosage: 400 UG, VAGINAL
     Route: 067

REACTIONS (2)
  - IATROGENIC INJURY [None]
  - UTERINE PERFORATION [None]
